FAERS Safety Report 4981803-1 (Version None)
Quarter: 2006Q2

REPORT INFORMATION
  Report Type: 
  Country: None (occurrence: None)
  Receive Date: 20060425
  Receipt Date: 20030415
  Transmission Date: 20061013
  Serious: Yes (Hospitalization)
  Sender: FDA-Public Use
  Company Number: JP-GLAXOSMITHKLINE-B0297638A

PATIENT
  Age: 37 Year
  Sex: Male
  Weight: 27.1 kg

DRUGS (10)
  1. PAXIL [Suspect]
     Indication: DEPRESSION
     Dosage: 10MG PER DAY
     Route: 048
     Dates: start: 20030201, end: 20030406
  2. PAXIL [Suspect]
     Indication: DRUG USE FOR UNKNOWN INDICATION
     Dosage: 20MG PER DAY
     Route: 048
     Dates: start: 20030201, end: 20030401
  3. TOFISOPAM [Concomitant]
     Indication: DEPRESSION
     Dosage: 150MG PER DAY
     Route: 048
     Dates: start: 20021101, end: 20030331
  4. TRIAZOLAM [Concomitant]
     Indication: DEPRESSION
     Dosage: 250MCG PER DAY
     Route: 048
     Dates: start: 20021101, end: 20030331
  5. LORMETAZEPAM [Concomitant]
     Indication: DEPRESSION
     Dosage: 1MG PER DAY
     Route: 048
     Dates: start: 20021101, end: 20030331
  6. SULPIRIDE [Concomitant]
     Indication: DEPRESSION
     Dosage: 150MG PER DAY
     Route: 048
     Dates: start: 20021101, end: 20030404
  7. ETHYL ICOSAPENTATE [Concomitant]
     Dosage: 1.2G PER DAY
     Route: 048
     Dates: start: 20021101, end: 20030331
  8. ITOPRIDE HYDROCHLORIDE [Concomitant]
     Route: 048
     Dates: start: 20030305, end: 20030309
  9. DOMPERIDONE [Concomitant]
     Route: 048
     Dates: start: 20030305, end: 20030309
  10. TEPRENONE [Concomitant]
     Route: 048
     Dates: start: 20030305, end: 20030309

REACTIONS (4)
  - HEPATIC FUNCTION ABNORMAL [None]
  - NAUSEA [None]
  - PYREXIA [None]
  - VOMITING [None]
